FAERS Safety Report 7803056-9 (Version None)
Quarter: 2011Q4

REPORT INFORMATION
  Report Type: 
  Country: None (occurrence: None)
  Receive Date: 20111007
  Receipt Date: 20111005
  Transmission Date: 20120403
  Serious: Yes (Hospitalization)
  Sender: FDA-Public Use
  Company Number: CA-ABBOTT-11P-028-0861538-00

PATIENT
  Age: 11 Year
  Sex: Female

DRUGS (6)
  1. DIMENHYDRINATE [Interacting]
     Indication: PRODUCT USED FOR UNKNOWN INDICATION
  2. ULTIVA [Interacting]
     Indication: PRODUCT USED FOR UNKNOWN INDICATION
     Route: 042
  3. VECURONIUM BROMIDE [Interacting]
     Indication: PRODUCT USED FOR UNKNOWN INDICATION
     Route: 042
  4. DEXAMETHASONE [Interacting]
     Indication: PRODUCT USED FOR UNKNOWN INDICATION
  5. ONDANSETRON [Interacting]
     Indication: PRODUCT USED FOR UNKNOWN INDICATION
  6. SEVOFLURANE [Suspect]
     Indication: PRODUCT USED FOR UNKNOWN INDICATION
     Dosage: LIQUID INHALTION
     Route: 055

REACTIONS (2)
  - VENTRICULAR TACHYCARDIA [None]
  - DRUG INTERACTION [None]
